FAERS Safety Report 8169092-0 (Version None)
Quarter: 2012Q1

REPORT INFORMATION
  Report Type: 
  Country: None (occurrence: None)
  Receive Date: 20120227
  Receipt Date: 20120222
  Transmission Date: 20120608
  Serious: Yes (Life-Threatening, Hospitalization)
  Sender: FDA-Public Use
  Company Number: RU-ASTRAZENECA-2012SE12316

PATIENT
  Age: 51 Year
  Sex: Male

DRUGS (2)
  1. NOVOCAIN [Concomitant]
  2. MARCAINE [Suspect]
     Indication: SPINAL ANAESTHESIA

REACTIONS (4)
  - URTICARIA [None]
  - RASH [None]
  - ANAPHYLACTIC SHOCK [None]
  - BRONCHOSPASM [None]
